FAERS Safety Report 14761721 (Version 1)
Quarter: 2018Q2

REPORT INFORMATION
  Report Type: Spontaneous
  Country: US (occurrence: US)
  Receive Date: 20180416
  Receipt Date: 20180416
  Transmission Date: 20180711
  Serious: No
  Sender: FDA-Public Use
  Company Number: US-BION-006395

PATIENT
  Age: 71 Year
  Sex: Female
  Weight: 82 kg

DRUGS (2)
  1. AMOXICILLIN. [Concomitant]
     Active Substance: AMOXICILLIN
  2. ALEVE [Suspect]
     Active Substance: NAPROXEN SODIUM
     Indication: URINARY TRACT INFECTION
     Route: 048
     Dates: start: 20170529, end: 20170601

REACTIONS (2)
  - Tendonitis [Unknown]
  - Product use in unapproved indication [Not Recovered/Not Resolved]
